FAERS Safety Report 14220928 (Version 3)
Quarter: 2022Q4

REPORT INFORMATION
  Report Type: Spontaneous
  Country: US (occurrence: US)
  Receive Date: 20171123
  Receipt Date: 20221206
  Transmission Date: 20230113
  Serious: No
  Sender: FDA-Public Use
  Company Number: US-JNJFOC-20171033455

PATIENT
  Sex: Male

DRUGS (3)
  1. RISPERDAL [Suspect]
     Active Substance: RISPERIDONE
     Indication: Major depression
     Dosage: IN VARYING DOSES OF 0.50 MG AND 01 MG
     Route: 048
     Dates: start: 20020103, end: 20080911
  2. RISPERIDONE [Suspect]
     Active Substance: RISPERIDONE
     Indication: Bipolar disorder
     Dosage: IN VARYING DOSES OF 0.25 MG AND 01 MG
     Route: 048
     Dates: start: 20081012, end: 20121210
  3. RISPERIDONE [Suspect]
     Active Substance: RISPERIDONE
     Indication: Major depression

REACTIONS (2)
  - Gynaecomastia [Unknown]
  - Emotional distress [Unknown]
